FAERS Safety Report 6394949-0 (Version None)
Quarter: 2009Q4

REPORT INFORMATION
  Report Type: 
  Country: None (occurrence: None)
  Receive Date: 20091009
  Receipt Date: 20090929
  Transmission Date: 20100525
  Serious: Yes (Other)
  Sender: FDA-Public Use
  Company Number: FR-PFIZER INC-2009270287

PATIENT
  Age: 35 Year

DRUGS (1)
  1. CHAMPIX [Suspect]
     Indication: SMOKING CESSATION THERAPY
     Dosage: 1 MG, 2X/DAY
     Dates: start: 20090101

REACTIONS (4)
  - ABNORMAL DREAMS [None]
  - AGGRESSION [None]
  - DISINHIBITION [None]
  - MANIA [None]
